FAERS Safety Report 5179645-X (Version None)
Quarter: 2006Q4

REPORT INFORMATION
  Report Type: 
  Country: None (occurrence: None)
  Receive Date: 20061211
  Receipt Date: 20061121
  Transmission Date: 20070319
  Serious: Yes (Other)
  Sender: FDA-Public Use
  Company Number: 13587506

PATIENT

DRUGS (1)
  1. EMSAM [Suspect]
     Dosage: TD
     Route: 062

REACTIONS (1)
  - HEPATIC FAILURE [None]
